FAERS Safety Report 13783774 (Version 1)
Quarter: 2017Q3

REPORT INFORMATION
  Report Type: Spontaneous
  Country: US (occurrence: US)
  Receive Date: 20170724
  Receipt Date: 20170724
  Transmission Date: 20171127
  Serious: Yes (Other)
  Sender: FDA-Public Use
  Company Number: PHEH2017US022612

PATIENT
  Sex: Female

DRUGS (1)
  1. AFINITOR [Suspect]
     Active Substance: EVEROLIMUS
     Indication: OVARIAN CANCER
     Dosage: 5 MG, QD
     Route: 048
     Dates: start: 20170511, end: 20170712

REACTIONS (8)
  - Anxiety [Unknown]
  - Ascites [Unknown]
  - Abdominal pain [Recovering/Resolving]
  - Ovarian cancer [Not Recovered/Not Resolved]
  - Malignant neoplasm progression [Not Recovered/Not Resolved]
  - Abdominal lymphadenopathy [Unknown]
  - Lymphadenopathy [Not Recovered/Not Resolved]
  - Product use in unapproved indication [Unknown]
